FAERS Safety Report 8424373-8 (Version None)
Quarter: 2012Q2

REPORT INFORMATION
  Report Type: 
  Country: None (occurrence: None)
  Receive Date: 20120608
  Receipt Date: 20110801
  Transmission Date: 20120825
  Serious: No
  Sender: FDA-Public Use
  Company Number: US-ASTRAZENECA-2011SE45775

PATIENT
  Age: 53 Year
  Sex: Male

DRUGS (3)
  1. CLARITIN [Concomitant]
  2. NASONEX [Concomitant]
  3. PULMICORT FLEXHALER [Suspect]
     Indication: ASTHMA
     Route: 055

REACTIONS (1)
  - ALOPECIA [None]
